FAERS Safety Report 5194295-7 (Version None)
Quarter: 2006Q4

REPORT INFORMATION
  Report Type: 
  Country: None (occurrence: None)
  Receive Date: 20061228
  Receipt Date: 20061016
  Transmission Date: 20070319
  Serious: Yes (Other)
  Sender: FDA-Public Use
  Company Number: US-PFIZER INC-2006126758

PATIENT
  Sex: Male
  Weight: 88.9 kg

DRUGS (6)
  1. LIPITOR [Suspect]
     Indication: BLOOD CHOLESTEROL INCREASED
  2. LIPITOR [Suspect]
     Indication: DYSLIPIDAEMIA
  3. BENAZEPRIL HYDROCHLORIDE [Concomitant]
     Route: 065
  4. VIAGRA [Concomitant]
     Route: 065
  5. SYNTHROID [Concomitant]
     Route: 065
  6. ACIPHEX [Concomitant]
     Route: 065

REACTIONS (5)
  - ASTHENIA [None]
  - BACK PAIN [None]
  - GAIT DISTURBANCE [None]
  - MUSCLE DISORDER [None]
  - PAIN [None]
